FAERS Safety Report 9335408 (Version 1)
Quarter: 2013Q2

REPORT INFORMATION
  Report Type: Spontaneous
  Country: GB (occurrence: GB)
  Receive Date: 20130605
  Receipt Date: 20130605
  Transmission Date: 20140414
  Serious: Yes (Other)
  Sender: FDA-Public Use
  Company Number: GB-BAXTER-2013BAX020275

PATIENT
  Age: 51 Year
  Sex: Male
  Weight: 89 kg

DRUGS (2)
  1. AERRANE (ISOFLURANE) [Suspect]
     Indication: ANAESTHESIA
     Route: 065
  2. REMIFENTANIL [Suspect]
     Indication: ANAESTHESIA
     Route: 065

REACTIONS (2)
  - Rhabdomyolysis [Recovered/Resolved]
  - Decubitus ulcer [Recovered/Resolved]
